FAERS Safety Report 11840962 (Version 1)
Quarter: 2015Q4

REPORT INFORMATION
  Report Type: Spontaneous
  Country: US (occurrence: US)
  Receive Date: 20151216
  Receipt Date: 20151216
  Transmission Date: 20160305
  Serious: No
  Sender: FDA-Public Use
  Company Number: US-BAYER-2015-489084

PATIENT
  Age: 88 Year
  Sex: Female
  Weight: 61.22 kg

DRUGS (5)
  1. SERTRALINE [Concomitant]
     Active Substance: SERTRALINE HYDROCHLORIDE
     Dosage: UNK
  2. CLARITIN [Suspect]
     Active Substance: LORATADINE
     Dosage: 1 DF, QD (BETWEEN 6:00 AM-6:30 AM)
     Route: 048
     Dates: start: 201510
  3. OYSCO D [CALCIUM,VITAMIN D NOS] [Concomitant]
     Dosage: UNK
  4. B KOMPLEX [VITAMIN-B-KOMPLEX STANDARD] [Concomitant]
     Dosage: UNK
  5. ASPIRIN (E.C.) [ACETYLSALICYLIC ACID] [Concomitant]
     Active Substance: ASPIRIN
     Dosage: UNK

REACTIONS (2)
  - Product use issue [None]
  - Drug effect incomplete [None]

NARRATIVE: CASE EVENT DATE: 201510
